FAERS Safety Report 9820875 (Version 1)
Quarter: 2014Q1

REPORT INFORMATION
  Report Type: Spontaneous
  Country: US (occurrence: US)
  Receive Date: 20140116
  Receipt Date: 20140116
  Transmission Date: 20141002
  Serious: Yes (Death)
  Sender: FDA-Public Use
  Company Number: US-PFIZER INC-2014005067

PATIENT
  Age: 44 Year
  Sex: Female

DRUGS (5)
  1. OXYCODONE HYDROCHLORIDE [Suspect]
     Dosage: UNK
     Route: 048
  2. DEXTROMETHORPHAN HBR [Suspect]
     Dosage: UNK
     Route: 048
  3. DOXEPIN HYDROCHLORIDE [Suspect]
     Dosage: UNK
     Route: 048
  4. COCAINE [Suspect]
     Dosage: UNK
     Route: 048
  5. DIPHENHYDRAMINE [Suspect]
     Dosage: UNK
     Route: 048

REACTIONS (1)
  - Drug abuse [Fatal]
